FAERS Safety Report 13381574 (Version 1)
Quarter: 2017Q1

REPORT INFORMATION
  Report Type: Other
  Country: CA (occurrence: CA)
  Receive Date: 20170329
  Receipt Date: 20170329
  Transmission Date: 20170429
  Serious: Yes (Other)
  Sender: FDA-Public Use
  Company Number: CA-APOTEX-2017AP008657

PATIENT
  Age: 54 Year
  Sex: Female

DRUGS (1)
  1. APO-LETROZOLE [Suspect]
     Active Substance: LETROZOLE
     Indication: BREAST CANCER STAGE II
     Dosage: UNK
     Route: 065

REACTIONS (7)
  - Decreased appetite [Unknown]
  - Fatigue [Unknown]
  - Cough [Unknown]
  - Metastases to bone [Unknown]
  - Metastases to lung [Unknown]
  - Metastases to the mediastinum [Unknown]
  - Metastases to liver [Unknown]
